FAERS Safety Report 13698486 (Version 1)
Quarter: 2017Q2

REPORT INFORMATION
  Report Type: Spontaneous
  Country: US (occurrence: US)
  Receive Date: 20170628
  Receipt Date: 20170628
  Transmission Date: 20170830
  Serious: Yes (Death, Life-Threatening, Hospitalization, Other)
  Sender: FDA-Public Use
  Company Number: US-PFIZER INC-2017037999

PATIENT
  Age: 47 Year
  Sex: Female

DRUGS (8)
  1. CAPECITABINE. [Concomitant]
     Active Substance: CAPECITABINE
     Dosage: 750 MG/M2, CYCLIC (2X/DAY, FOR 2 WEEKS FOLLOWED BY A WEEK OFF)
     Route: 048
     Dates: start: 200701, end: 200706
  2. GEMCITABINE HYDROCHLORIDE. [Suspect]
     Active Substance: GEMCITABINE HYDROCHLORIDE
     Indication: PANCREATIC CARCINOMA
     Dosage: 1000 MG/M2, CYCLIC, (WEEKLY INFUSION FOR 2 WEEKS FOLLOWED BY 1 WEEK OFF)
     Dates: start: 200609, end: 200701
  3. BEVACIZUMAB [Concomitant]
     Active Substance: BEVACIZUMAB
     Indication: PANCREATIC CARCINOMA
     Dosage: 15 MG/M2, EVERY 3 WEEKS
     Route: 042
     Dates: start: 200609, end: 200701
  4. FUROSEMIDE. [Concomitant]
     Active Substance: FUROSEMIDE
     Dosage: 60 MG, DAILY
     Route: 048
  5. DEXAMETHASONE. [Concomitant]
     Active Substance: DEXAMETHASONE
     Dosage: 4 MG, 2X/DAY(ON DAYS ONE TO THREE OF THE CHEMOTHERAPY CYCLE)
     Route: 048
  6. FUROSEMIDE. [Concomitant]
     Active Substance: FUROSEMIDE
     Indication: OEDEMA PERIPHERAL
     Dosage: 40 MG, UNK
     Route: 048
  7. GEMCITABINE HYDROCHLORIDE. [Suspect]
     Active Substance: GEMCITABINE HYDROCHLORIDE
     Dosage: 1000 MG/M2, CYCLIC, (WEEKLY INFUSION FOR 2 WEEKS FOLLOWED BY 1 WEEK OFF)
     Dates: start: 200701, end: 200706
  8. CAPECITABINE. [Concomitant]
     Active Substance: CAPECITABINE
     Indication: PANCREATIC CARCINOMA
     Dosage: 825 MG/M2, 2X/DAY (FOR 2 WEEKS, FOLLOWED BY 1 WEEK OFF)
     Route: 048
     Dates: start: 200609, end: 200701

REACTIONS (1)
  - Haemolytic uraemic syndrome [Fatal]
